FAERS Safety Report 9920788 (Version 3)
Quarter: 2014Q1

REPORT INFORMATION
  Report Type: Spontaneous
  Country: FR (occurrence: FR)
  Receive Date: 20140224
  Receipt Date: 20140328
  Transmission Date: 20141002
  Serious: Yes (Other)
  Sender: FDA-Public Use
  Company Number: FR-ABBVIE-12P-056-1001874-00

PATIENT
  Sex: Male

DRUGS (5)
  1. RITONAVIR [Suspect]
     Indication: HIV INFECTION
     Route: 048
     Dates: end: 201209
  2. TRUVADA [Suspect]
     Indication: HIV INFECTION
     Route: 048
     Dates: start: 2010
  3. DARUNAVIR [Suspect]
     Indication: HIV INFECTION
     Route: 048
  4. DARUNAVIR [Suspect]
     Route: 048
     Dates: end: 201209
  5. BILTRICIDE [Concomitant]
     Indication: PRODUCT USED FOR UNKNOWN INDICATION
     Dates: start: 201203, end: 201203

REACTIONS (4)
  - Liver disorder [Recovering/Resolving]
  - Hepatitis B DNA assay positive [Unknown]
  - Drug ineffective [Unknown]
  - Cholestasis [Unknown]
